FAERS Safety Report 17202661 (Version 1)
Quarter: 2019Q4

REPORT INFORMATION
  Report Type: Spontaneous
  Country: FR (occurrence: FR)
  Receive Date: 20191226
  Receipt Date: 20191226
  Transmission Date: 20200122
  Serious: Yes (Death)
  Sender: FDA-Public Use
  Company Number: FR-MYLANLABS-2019M1126240

PATIENT
  Age: 19 Year
  Sex: Male

DRUGS (2)
  1. IDARUBICIN MYLAN [Suspect]
     Active Substance: IDARUBICIN
     Indication: ACUTE MYELOID LEUKAEMIA
     Dosage: 19.7 MILLIGRAM, QD
     Route: 042
     Dates: start: 20190313, end: 20190317
  2. CYTARABINE. [Suspect]
     Active Substance: CYTARABINE
     Indication: ACUTE MYELOID LEUKAEMIA
     Dosage: 430 MILLIGRAM, QD
     Route: 042
     Dates: start: 20190313, end: 20190319

REACTIONS (3)
  - Mucosal inflammation [Fatal]
  - Epidermal necrosis [Fatal]
  - Nervous system disorder [Fatal]

NARRATIVE: CASE EVENT DATE: 20190317
